FAERS Safety Report 25031506 (Version 1)
Quarter: 2025Q1

REPORT INFORMATION
  Report Type: Report from Study
  Country: FR (occurrence: FR)
  Receive Date: 20250303
  Receipt Date: 20250303
  Transmission Date: 20250409
  Serious: Yes (Other)
  Sender: MYLAN
  Company Number: FR-MYLANLABS-2025M1016089

PATIENT
  Age: 14 Year
  Sex: Male

DRUGS (9)
  1. PREDNISONE [Suspect]
     Active Substance: PREDNISONE
     Indication: Prophylaxis against transplant rejection
     Dosage: 0.3 MILLIGRAM/KILOGRAM, QD
  2. MYCOPHENOLATE MOFETIL [Suspect]
     Active Substance: MYCOPHENOLATE MOFETIL
     Indication: Prophylaxis against transplant rejection
     Dosage: 30 MILLIGRAM/KILOGRAM, QD
  3. CYCLOSPORINE [Suspect]
     Active Substance: CYCLOSPORINE
     Indication: Prophylaxis against transplant rejection
     Dosage: 8 MILLIGRAM/KILOGRAM, QD
  4. FLUCONAZOLE [Suspect]
     Active Substance: FLUCONAZOLE
     Indication: Antifungal prophylaxis
     Dosage: 6 MILLIGRAM/KILOGRAM, QD
  5. COTRIMOXAZOLE [Suspect]
     Active Substance: SULFAMETHOXAZOLE\TRIMETHOPRIM
     Indication: Antibiotic prophylaxis
     Dosage: 12 MILLIGRAM/KILOGRAM, Q3W
  6. VALGANCICLOVIR [Concomitant]
     Active Substance: VALGANCICLOVIR
     Indication: Antiviral prophylaxis
     Dosage: 14 MILLIGRAM/KILOGRAM, QD
  7. Immunoglobulin [Concomitant]
     Indication: Lung transplant rejection
  8. RITUXIMAB [Concomitant]
     Active Substance: RITUXIMAB
     Indication: Lung transplant rejection
  9. RUXOLITINIB [Concomitant]
     Active Substance: RUXOLITINIB
     Indication: STING-associated vasculopathy with onset in infancy
     Dosage: 0.3 MILLIGRAM/KILOGRAM, QD

REACTIONS (5)
  - Aspergillus infection [Unknown]
  - Stenotrophomonas infection [Unknown]
  - Pneumonia [Unknown]
  - Candida infection [Unknown]
  - Drug ineffective [Unknown]
